FAERS Safety Report 8265305-5 (Version None)
Quarter: 2012Q2

REPORT INFORMATION
  Report Type: 
  Country: None (occurrence: None)
  Receive Date: 20120406
  Receipt Date: 20120402
  Transmission Date: 20120825
  Serious: Yes (Death)
  Sender: FDA-Public Use
  Company Number: JP-SANOFI-AVENTIS-2012SA018385

PATIENT

DRUGS (3)
  1. GIMERACIL/OTERACIL POTASSIUM/TEGAFUR [Suspect]
     Indication: GASTRIC CANCER
     Dosage: ON DAY 1-14
     Route: 048
  2. DOCETAXEL [Suspect]
     Indication: GASTRIC CANCER
     Dosage: CONTINUOUS INTRAVENOUS INFUSION  FOR 60 MIN ON DAY 1 OF 28-DAY CYCLE
     Route: 042
  3. CISPLATIN [Suspect]
     Indication: GASTRIC CANCER
     Dosage: CONTINUOUS INTRAVENOUS INFUSION FOR 90 MIN ON DAY 1 OF 28-DAY CYCLE
     Route: 042

REACTIONS (1)
  - TUMOUR PERFORATION [None]
